FAERS Safety Report 6446560-0 (Version None)
Quarter: 2009Q4

REPORT INFORMATION
  Report Type: 
  Country: None (occurrence: None)
  Receive Date: 20091119
  Receipt Date: 20091110
  Transmission Date: 20100525
  Serious: Yes (Hospitalization)
  Sender: FDA-Public Use
  Company Number: US-ASTRAZENECA-2009SE26044

PATIENT
  Age: 66 Year
  Sex: Female

DRUGS (5)
  1. SEROQUEL XR [Suspect]
     Route: 048
  2. SEROQUEL XR [Suspect]
     Route: 048
  3. REMERON [Concomitant]
     Route: 065
  4. XANAX [Concomitant]
     Route: 065
  5. RISPERDAL [Concomitant]
     Route: 065

REACTIONS (1)
  - WATER INTOXICATION [None]
